FAERS Safety Report 25630153 (Version 1)
Quarter: 2025Q3

REPORT INFORMATION
  Report Type: Spontaneous
  Country: US (occurrence: US)
  Receive Date: 20250801
  Receipt Date: 20250801
  Transmission Date: 20251021
  Serious: No
  Sender: BIOGEN
  Company Number: US-BIOGEN-2025BI01318464

PATIENT
  Age: 66 Year
  Sex: Male
  Weight: 63.01 kg

DRUGS (1)
  1. QALSODY [Suspect]
     Active Substance: TOFERSEN
     Indication: Amyotrophic lateral sclerosis
     Route: 050
     Dates: start: 20230303

REACTIONS (5)
  - Asthenia [Recovered/Resolved]
  - Muscular weakness [Unknown]
  - Ocular hyperaemia [Unknown]
  - Lacrimation increased [Unknown]
  - Eye swelling [Unknown]

NARRATIVE: CASE EVENT DATE: 20250715
